FAERS Safety Report 7270552-5 (Version None)
Quarter: 2011Q1

REPORT INFORMATION
  Report Type: 
  Country: None (occurrence: None)
  Receive Date: 20110202
  Receipt Date: 20110131
  Transmission Date: 20110831
  Serious: Yes (Other)
  Sender: FDA-Public Use
  Company Number: A0910600A

PATIENT
  Age: 32 Year
  Sex: Female

DRUGS (1)
  1. WALGREENS NICOTINE TRANSDERMAL SYSTEM PATCH CLEAR, 14MG [Suspect]
     Indication: SMOKING CESSATION THERAPY
     Route: 062
     Dates: start: 20110124, end: 20110126

REACTIONS (5)
  - ARTHRALGIA [None]
  - ARTHROPATHY [None]
  - PARALYSIS [None]
  - PSYCHOMOTOR HYPERACTIVITY [None]
  - HYPERTENSION [None]
